FAERS Safety Report 11564501 (Version 1)
Quarter: 2015Q3

REPORT INFORMATION
  Report Type: Spontaneous
  Country: US (occurrence: US)
  Receive Date: 20150916
  Receipt Date: 20150916
  Transmission Date: 20151125
  Serious: No
  Sender: FDA-Public Use
  Company Number: US-ELI_LILLY_AND_COMPANY-US200903004750

PATIENT
  Age: 56 Year
  Sex: Female

DRUGS (1)
  1. FORTEO [Suspect]
     Active Substance: TERIPARATIDE
     Indication: THORACIC VERTEBRAL FRACTURE
     Dates: start: 2008

REACTIONS (19)
  - Pain in extremity [Unknown]
  - Fall [Recovering/Resolving]
  - Accidental overdose [Unknown]
  - Injection site nodule [Unknown]
  - Injection site erythema [Recovered/Resolved]
  - Traumatic lung injury [Recovering/Resolving]
  - Visual acuity reduced [Not Recovered/Not Resolved]
  - Medication error [Unknown]
  - Malaise [Unknown]
  - Confusional state [Unknown]
  - Contusion [Recovering/Resolving]
  - Arthralgia [Recovering/Resolving]
  - Breast pain [Recovering/Resolving]
  - Anger [Unknown]
  - Memory impairment [Unknown]
  - Injection site pain [Not Recovered/Not Resolved]
  - Upper limb fracture [Recovering/Resolving]
  - Musculoskeletal chest pain [Recovering/Resolving]
  - Chest discomfort [Not Recovered/Not Resolved]

NARRATIVE: CASE EVENT DATE: 2008
